FAERS Safety Report 17362278 (Version 2)
Quarter: 2020Q3

REPORT INFORMATION
  Report Type: Report from Study
  Country: JP (occurrence: JP)
  Receive Date: 20200203
  Receipt Date: 20200720
  Transmission Date: 20201102
  Serious: Yes (Death)
  Sender: FDA-Public Use
  Company Number: JP-ROCHE-2538433

PATIENT
  Sex: Female

DRUGS (3)
  1. TRASTUZUMAB. [Suspect]
     Active Substance: TRASTUZUMAB
     Indication: BREAST CANCER
     Dosage: LAST DOSE OF TRASTUZUMAB RECEIVED ON 26/JUN/2017
     Route: 041
     Dates: start: 20170515
  2. PERTUZUMAB. [Suspect]
     Active Substance: PERTUZUMAB
     Indication: BREAST CANCER
     Dosage: LAST DOSE OF PERTUZUMAB RECEIVED ON 26/JUN/2017?STRENGTH: 420 MG/14 ML
     Route: 041
     Dates: start: 20170515
  3. ERIBULIN MESILATE [Suspect]
     Active Substance: ERIBULIN
     Indication: BREAST CANCER
     Dosage: DOSAGE UNCERTAIN
     Route: 041

REACTIONS (1)
  - Blood albumin decreased [Fatal]

NARRATIVE: CASE EVENT DATE: 20170718
